FAERS Safety Report 4568653-5 (Version None)
Quarter: 2005Q1

REPORT INFORMATION
  Report Type: 
  Country: None (occurrence: None)
  Receive Date: 20050118
  Receipt Date: 20040715
  Transmission Date: 20050727
  Serious: Yes (Other)
  Sender: FDA-Public Use
  Company Number: HQWYE180516JUL04

PATIENT
  Age: 69 Year
  Sex: Female

DRUGS (8)
  1. PREMPRO [Suspect]
     Indication: HORMONE REPLACEMENT THERAPY
     Dosage: 0.625/2.5 TABLET DAILY, ORAL
     Route: 048
     Dates: start: 19950101, end: 20020801
  2. CURRETAB [Suspect]
  3. ESTRACE [Suspect]
  4. ESTRATEST [Suspect]
  5. MEDROXYPROGESTERONE ACETATE [Suspect]
  6. PREMARIN [Suspect]
  7. PROVERA [Suspect]
  8. VIVELLE [Suspect]

REACTIONS (1)
  - BREAST CANCER [None]
